FAERS Safety Report 8138007-3 (Version None)
Quarter: 2012Q1

REPORT INFORMATION
  Report Type: 
  Country: None (occurrence: None)
  Receive Date: 20120215
  Receipt Date: 20120209
  Transmission Date: 20120608
  Serious: Yes (Other)
  Sender: FDA-Public Use
  Company Number: FI-PFIZER INC-2012036559

PATIENT
  Sex: Female

DRUGS (2)
  1. LYRICA [Suspect]
     Dosage: 150 MG, 3X/DAY
  2. SUBUTEX [Suspect]

REACTIONS (2)
  - INTENTIONAL DRUG MISUSE [None]
  - DRUG DEPENDENCE [None]
